FAERS Safety Report 20000845 (Version 1)
Quarter: 2021Q4

REPORT INFORMATION
  Report Type: Spontaneous
  Country: US (occurrence: US)
  Receive Date: 20211027
  Receipt Date: 20211027
  Transmission Date: 20220304
  Serious: Yes (Hospitalization)
  Sender: FDA-Public Use
  Company Number: None

PATIENT
  Age: 74 Year
  Sex: Male
  Weight: 74 kg

DRUGS (1)
  1. SEMAGLUTIDE [Suspect]
     Active Substance: SEMAGLUTIDE
     Indication: Diabetes mellitus
     Route: 058
     Dates: start: 20210816, end: 20210923

REACTIONS (8)
  - Acute myocardial infarction [None]
  - Ventricular tachycardia [None]
  - Metabolic disorder [None]
  - Pancreatitis [None]
  - Lipase increased [None]
  - Nausea [None]
  - Vomiting [None]
  - Gastrointestinal disorder [None]

NARRATIVE: CASE EVENT DATE: 20210923
